FAERS Safety Report 15989562 (Version 4)
Quarter: 2019Q3

REPORT INFORMATION
  Report Type: Spontaneous
  Country: US (occurrence: US)
  Receive Date: 20190221
  Receipt Date: 20190819
  Transmission Date: 20191004
  Serious: No
  Sender: FDA-Public Use
  Company Number: US-PFIZER INC-2019068897

PATIENT
  Age: 62 Year
  Sex: Female
  Weight: 82.86 kg

DRUGS (1)
  1. LYRICA [Suspect]
     Active Substance: PREGABALIN
     Indication: FIBROMYALGIA
     Dosage: 75 MG, 2X/DAY
     Route: 048
     Dates: start: 2018

REACTIONS (8)
  - Depression [Unknown]
  - Somnolence [Unknown]
  - Product dose omission [Unknown]
  - Pain in extremity [Unknown]
  - Mutism [Unknown]
  - Drug detoxification [Recovered/Resolved]
  - Back pain [Unknown]
  - Feeling abnormal [Recovered/Resolved]

NARRATIVE: CASE EVENT DATE: 201906
